FAERS Safety Report 19553559 (Version 2)
Quarter: 2021Q3

REPORT INFORMATION
  Report Type: Spontaneous
  Country: MX (occurrence: MX)
  Receive Date: 20210714
  Receipt Date: 20210723
  Transmission Date: 20211014
  Serious: Yes (Disabling)
  Sender: FDA-Public Use
  Company Number: MX-ROCHE-2870411

PATIENT
  Age: 23 Year
  Sex: Female

DRUGS (3)
  1. MABTHERA [Suspect]
     Active Substance: RITUXIMAB
     Indication: VASCULITIS
     Dosage: 4 INFUSIONS (1 EVERY WEEK FOR 4 WEEKS)
     Route: 041
     Dates: start: 202012
  2. MABTHERA [Suspect]
     Active Substance: RITUXIMAB
     Indication: GRANULOMATOSIS WITH POLYANGIITIS
  3. VITAMIN D3 [Concomitant]
     Active Substance: CHOLECALCIFEROL
     Indication: GRANULOMATOSIS WITH POLYANGIITIS
     Route: 048

REACTIONS (5)
  - Ill-defined disorder [Unknown]
  - Pharyngeal inflammation [Unknown]
  - Dyspnoea exertional [Unknown]
  - Off label use [Unknown]
  - Tracheostomy malfunction [Unknown]

NARRATIVE: CASE EVENT DATE: 202012
